FAERS Safety Report 5982572-9 (Version None)
Quarter: 2008Q4

REPORT INFORMATION
  Report Type: 
  Country: None (occurrence: None)
  Receive Date: 20081208
  Receipt Date: 20081127
  Transmission Date: 20090506
  Serious: Yes (Other)
  Sender: FDA-Public Use
  Company Number: PHHY2008CA30095

PATIENT

DRUGS (2)
  1. AREDIA [Suspect]
     Indication: ARTHRITIS
     Dosage: UNK
  2. AREDIA [Suspect]
     Indication: BONE PAIN

REACTIONS (4)
  - BONE DISORDER [None]
  - COUGH [None]
  - LUNG DISORDER [None]
  - PAIN IN EXTREMITY [None]
